FAERS Safety Report 5664388-6 (Version None)
Quarter: 2008Q1

REPORT INFORMATION
  Report Type: 
  Country: None (occurrence: None)
  Receive Date: 20080314
  Receipt Date: 20080229
  Transmission Date: 20080703
  Serious: Yes (Other)
  Sender: FDA-Public Use
  Company Number: TR-AMGEN-US181666

PATIENT
  Sex: Female
  Weight: 70 kg

DRUGS (5)
  1. ENBREL [Suspect]
     Indication: RHEUMATOID ARTHRITIS
     Route: 058
     Dates: start: 20050815, end: 20060507
  2. CALCIUM [Concomitant]
     Indication: OSTEOPOROSIS
     Route: 065
  3. ACTONEL [Concomitant]
     Indication: OSTEOPOROSIS
     Route: 065
  4. METHOTREXATE [Concomitant]
     Indication: RHEUMATOID ARTHRITIS
     Route: 065
  5. FLANTADIN [Concomitant]
     Indication: RHEUMATOID ARTHRITIS
     Route: 065

REACTIONS (1)
  - BREAST CANCER IN SITU [None]
